FAERS Safety Report 23535012 (Version 1)
Quarter: 2024Q1

REPORT INFORMATION
  Report Type: Other
  Country: US (occurrence: US)
  Receive Date: 20240217
  Receipt Date: 20240217
  Transmission Date: 20240410
  Serious: No
  Sender: FDA-Public Use
  Company Number: US-LEADIANT BIOSCIENCES INC-2018STPI000783

PATIENT

DRUGS (12)
  1. CYSTARAN [Suspect]
     Active Substance: CYSTEAMINE HYDROCHLORIDE
     Indication: Keratitis
     Dosage: 15 MILLILITER AS DIRECTED
     Route: 047
     Dates: start: 20180313
  2. LEVOTHYROXINE [Concomitant]
     Active Substance: LEVOTHYROXINE\LEVOTHYROXINE SODIUM
     Dosage: 100 MICROGRAMS
     Route: 048
     Dates: start: 20180702
  3. JANUVIA [Concomitant]
     Active Substance: SITAGLIPTIN PHOSPHATE
     Dosage: 100 MILLIGRAM
     Route: 048
     Dates: start: 20180702
  4. CREON [Concomitant]
     Active Substance: PANCRELIPASE AMYLASE\PANCRELIPASE LIPASE\PANCRELIPASE PROTEASE
     Dosage: 30000 UNK
     Route: 048
     Dates: start: 20180702
  5. GLIMEPIRIDE [Concomitant]
     Active Substance: GLIMEPIRIDE
     Dosage: 2 MILLIGRAM
     Route: 048
     Dates: start: 20180702
  6. CALCITRIOL [Concomitant]
     Active Substance: CALCITRIOL
     Dosage: 0.25 MICROGRAM
     Route: 048
     Dates: start: 20180702
  7. LOSARTAN [Concomitant]
     Active Substance: LOSARTAN
     Dosage: 25 MILLIGRAM
     Route: 048
     Dates: start: 20180702
  8. PREDNISONE [Concomitant]
     Active Substance: PREDNISONE
     Dosage: 10 MILLIGRAM
     Route: 048
     Dates: start: 20190702
  9. BACTRIM [Concomitant]
     Active Substance: SULFAMETHOXAZOLE\TRIMETHOPRIM
     Dosage: 400-80 MILLIGRAM
     Route: 048
     Dates: start: 20180702
  10. ANDROGEL [Concomitant]
     Active Substance: TESTOSTERONE
     Dosage: 1.82 PERCENT
     Route: 062
     Dates: start: 20180702
  11. ATORVASTATIN [Concomitant]
     Active Substance: ATORVASTATIN
     Dosage: 20 MILLIGRAM
     Route: 048
     Dates: start: 20180702
  12. RANITIDINE [Concomitant]
     Active Substance: RANITIDINE
     Dosage: 150 MILLIGRAM
     Route: 048
     Dates: start: 20180702

REACTIONS (1)
  - Eye irritation [Not Recovered/Not Resolved]
